FAERS Safety Report 21507126 (Version 1)
Quarter: 2022Q4

REPORT INFORMATION
  Report Type: Spontaneous
  Country: US (occurrence: None)
  Receive Date: 20221025
  Receipt Date: 20221025
  Transmission Date: 20230112
  Serious: No
  Sender: FDA-Public Use
  Company Number: None

PATIENT
  Age: 74 Year
  Sex: Female
  Weight: 78.02 kg

DRUGS (18)
  1. LENALIDOMIDE [Suspect]
     Active Substance: LENALIDOMIDE
     Indication: Plasma cell myeloma
     Dosage: OTHER FREQUENCY : 21D OF 28 DAYS;?
     Route: 048
  2. ASPIRIN LOW DOSE [Concomitant]
  3. ATORVASTATIN [Concomitant]
  4. DICLOFENAC [Concomitant]
  5. ELIQUIS [Concomitant]
  6. HYDROCHLOROTHIAZIDE [Concomitant]
  7. HYDROCODONE-ACETAMINOPHEN [Concomitant]
  8. LASIX [Concomitant]
     Active Substance: FUROSEMIDE
  9. MELATONIN [Concomitant]
     Active Substance: MELATONIN
  10. LEVOTHYROXINE [Concomitant]
  11. MELOXICAM [Concomitant]
  12. METOPROLOL [Concomitant]
     Active Substance: METOPROLOL
  13. MIRTAZAPINE [Concomitant]
  14. OMEPRAZOLE [Concomitant]
  15. SENNA-DOCUSATE [Concomitant]
  16. TRIAMCINOLONE ACETONIDE [Concomitant]
  17. TYLENOL [Concomitant]
     Active Substance: ACETAMINOPHEN
  18. XGEVA [Concomitant]

REACTIONS (1)
  - Rash pruritic [None]
